FAERS Safety Report 21735410 (Version 3)
Quarter: 2023Q2

REPORT INFORMATION
  Report Type: Report from Study
  Country: IT (occurrence: IT)
  Receive Date: 20221215
  Receipt Date: 20230517
  Transmission Date: 20230721
  Serious: Yes (Hospitalization, Other)
  Sender: FDA-Public Use
  Company Number: IT-TAKEDA-2022TUS097451

PATIENT
  Age: 65 Year
  Sex: Female

DRUGS (17)
  1. TEDUGLUTIDE [Suspect]
     Active Substance: TEDUGLUTIDE
     Indication: Short-bowel syndrome
     Dosage: 2.5 MILLIGRAM, QD
     Route: 042
     Dates: start: 20210131, end: 20210301
  2. TEDUGLUTIDE [Suspect]
     Active Substance: TEDUGLUTIDE
     Indication: Short-bowel syndrome
     Dosage: 2.5 MILLIGRAM, QD
     Route: 042
     Dates: start: 20210131, end: 20210301
  3. TEDUGLUTIDE [Suspect]
     Active Substance: TEDUGLUTIDE
     Indication: Short-bowel syndrome
     Dosage: 2.5 MILLIGRAM, QD
     Route: 042
     Dates: start: 20210131, end: 20210301
  4. TEDUGLUTIDE [Suspect]
     Active Substance: TEDUGLUTIDE
     Indication: Short-bowel syndrome
     Dosage: 2.5 MILLIGRAM, QD
     Route: 042
     Dates: start: 20210131, end: 20210301
  5. TEDUGLUTIDE [Suspect]
     Active Substance: TEDUGLUTIDE
     Dosage: 1.8 MILLIGRAM, QD
     Route: 042
     Dates: start: 20210302
  6. TEDUGLUTIDE [Suspect]
     Active Substance: TEDUGLUTIDE
     Dosage: 1.8 MILLIGRAM, QD
     Route: 042
     Dates: start: 20210302
  7. TEDUGLUTIDE [Suspect]
     Active Substance: TEDUGLUTIDE
     Dosage: 1.8 MILLIGRAM, QD
     Route: 042
     Dates: start: 20210302
  8. TEDUGLUTIDE [Suspect]
     Active Substance: TEDUGLUTIDE
     Dosage: 1.8 MILLIGRAM, QD
     Route: 042
     Dates: start: 20210302
  9. ASTRAZENECA COVID-19 VACCINE [Concomitant]
     Active Substance: AZD-1222
     Indication: COVID-19
     Dosage: UNK
     Route: 065
     Dates: start: 20210315
  10. CHOLECALCIFEROL [Concomitant]
     Active Substance: CHOLECALCIFEROL
     Indication: Osteopenia
     Dosage: 100000 INTERNATIONAL UNIT, Q3MONTHS
     Route: 030
  11. Folina [Concomitant]
     Indication: Nutritional supplementation
     Dosage: UNK UNK, QOD
     Route: 048
     Dates: start: 20191022
  12. ZINC SULFATE [Concomitant]
     Active Substance: ZINC SULFATE
     Indication: Nutritional supplementation
     Dosage: 200 MILLIGRAM, QD
     Route: 048
  13. CIPROFLOXACIN [Concomitant]
     Active Substance: CIPROFLOXACIN
     Indication: Device related sepsis
     Dosage: 1 DOSAGE FORM, BID
     Route: 048
     Dates: start: 20221029, end: 20221104
  14. RIFAXIMIN [Concomitant]
     Active Substance: RIFAXIMIN
     Dosage: 2 DOSAGE FORM
     Route: 048
     Dates: start: 20221111, end: 20221122
  15. Niferex [Concomitant]
     Indication: Iron deficiency
     Dosage: 1 DOSAGE FORM, QD
     Route: 048
     Dates: start: 20221116, end: 20221122
  16. PAROXETINE [Concomitant]
     Active Substance: PAROXETINE
     Indication: Depression
     Dosage: 1 DOSAGE FORM, BID
     Route: 065
  17. TAUROLIDINE [Concomitant]
     Active Substance: TAUROLIDINE
     Indication: Vascular device infection
     Dosage: 1 DOSAGE FORM, QD
     Route: 042
     Dates: start: 20221122

REACTIONS (2)
  - Vascular device infection [Recovered/Resolved]
  - Iron deficiency [Recovered/Resolved]

NARRATIVE: CASE EVENT DATE: 20221018
